FAERS Safety Report 5124853-7 (Version None)
Quarter: 2006Q4

REPORT INFORMATION
  Report Type: 
  Country: None (occurrence: None)
  Receive Date: 20061011
  Receipt Date: 20061003
  Transmission Date: 20070319
  Serious: Yes (Other)
  Sender: FDA-Public Use
  Company Number: BR-ROCHE-465894

PATIENT
  Age: 37 Year
  Sex: Male
  Weight: 106 kg

DRUGS (4)
  1. RIVOTRIL [Suspect]
     Indication: ANXIETY
     Dosage: INDICATION REPORTED AS ANXIETY AND INSOMNIA.
     Route: 048
     Dates: start: 20060715
  2. RIVOTRIL [Suspect]
     Dosage: IRREGULARLY INTAKE.
     Route: 048
     Dates: start: 20040615
  3. ACETAMINOPHEN W/ CODEINE [Concomitant]
     Route: 048
     Dates: start: 20060926
  4. ALGINAC [Concomitant]
     Route: 048
     Dates: start: 20060926

REACTIONS (2)
  - NO THERAPEUTIC RESPONSE [None]
  - SPINAL DISORDER [None]
